FAERS Safety Report 9964221 (Version 1)
Quarter: 2014Q1

REPORT INFORMATION
  Report Type: Spontaneous
  Country: TR (occurrence: TR)
  Receive Date: 20140305
  Receipt Date: 20140305
  Transmission Date: 20141002
  Serious: Yes (Hospitalization)
  Sender: FDA-Public Use
  Company Number: TR-B.I. PHARMACEUTICALS,INC./RIDGEFIELD-2014-BI-09158TK

PATIENT
  Age: 58 Year
  Sex: Male
  Weight: 57 kg

DRUGS (6)
  1. PRADAXA [Suspect]
     Indication: ATRIAL FIBRILLATION
     Route: 048
     Dates: start: 20140213, end: 20140218
  2. CORASPIN [Concomitant]
     Indication: CORONARY ARTERY DISEASE
     Dosage: DOSE OF ONE APPLICATION: 100
     Route: 048
  3. DELIX [Concomitant]
     Indication: CORONARY ARTERY DISEASE
     Dosage: DOSE OF ONE APPLICATION: 2.5
     Route: 048
  4. DILATREND [Concomitant]
     Indication: CORONARY ARTERY DISEASE
     Dosage: DOSE PER APPLICATION: 12.5
     Route: 048
  5. ALDACTAZIDE [Concomitant]
     Indication: CORONARY ARTERY DISEASE
     Dosage: DOSE PER APPLICATION: 25
     Route: 048
  6. LASIX [Concomitant]
     Indication: CORONARY ARTERY DISEASE
     Dosage: DOSE PER APPLICATION: 40
     Route: 048

REACTIONS (2)
  - Atrial thrombosis [Not Recovered/Not Resolved]
  - Pulmonary embolism [Not Recovered/Not Resolved]
